FAERS Safety Report 17236706 (Version 8)
Quarter: 2024Q1

REPORT INFORMATION
  Report Type: Spontaneous
  Country: US (occurrence: US)
  Receive Date: 20200106
  Receipt Date: 20240209
  Transmission Date: 20240409
  Serious: Yes (Death, Other)
  Sender: FDA-Public Use
  Company Number: US-NOVARTISPH-NVSC2020US000917

PATIENT
  Age: 61 Year
  Sex: Female
  Weight: 70.3 kg

DRUGS (1)
  1. KYMRIAH [Suspect]
     Active Substance: TISAGENLECLEUCEL
     Indication: Diffuse large B-cell lymphoma recurrent
     Dosage: 2.8X10-8 CAR (POSITIVE), ONCE/SINGLE
     Route: 042
     Dates: start: 20191122

REACTIONS (6)
  - T-cell lymphoma [Fatal]
  - Second primary malignancy [Fatal]
  - Cytokine release syndrome [Unknown]
  - Hypoxia [Unknown]
  - Pyrexia [Unknown]
  - Confusional state [Unknown]

NARRATIVE: CASE EVENT DATE: 20191127
